FAERS Safety Report 18773724 (Version 1)
Quarter: 2021Q1

REPORT INFORMATION
  Report Type: Spontaneous
  Country: US (occurrence: US)
  Receive Date: 20210122
  Receipt Date: 20210122
  Transmission Date: 20210419
  Serious: No
  Sender: FDA-Public Use
  Company Number: US-SA-2021SA013548

PATIENT
  Sex: Male
  Weight: 106 kg

DRUGS (10)
  1. ACTRAPID [Concomitant]
     Active Substance: INSULIN HUMAN
  2. BISOPROLOL HEMIFUMARATE [Concomitant]
     Active Substance: BISOPROLOL FUMARATE
  3. BUSCOPAN [Suspect]
     Active Substance: BUTYLSCOPOLAMINE BROMIDE
     Indication: WEIGHT CONTROL
     Dosage: 1 DF, QD
  4. TRESIBA [Concomitant]
     Active Substance: INSULIN DEGLUDEC
     Dosage: UNK
  5. FORXIGA [Concomitant]
     Active Substance: DAPAGLIFLOZIN
     Dosage: UNK
  6. SIMVA [Concomitant]
     Active Substance: SIMVASTATIN
     Dosage: UNK
  7. METFORMIN [Concomitant]
     Active Substance: METFORMIN HYDROCHLORIDE
     Dosage: UNK
  8. TAMSULOSINA [Suspect]
     Active Substance: TAMSULOSIN HYDROCHLORIDE
     Indication: PROSTATIC DISORDER
     Dosage: 1 DF, QD
     Dates: start: 202009
  9. CANDESARTAN. [Concomitant]
     Active Substance: CANDESARTAN
     Dosage: UNK
  10. ASSAULT [Concomitant]
     Dosage: UNK

REACTIONS (1)
  - Heart rate increased [Unknown]
